FAERS Safety Report 10158371 (Version 1)
Quarter: 2014Q2

REPORT INFORMATION
  Report Type: Report from Study
  Country: US (occurrence: US)
  Receive Date: 20140507
  Receipt Date: 20140507
  Transmission Date: 20141212
  Serious: Yes (Other)
  Sender: FDA-Public Use
  Company Number: US-ABBVIE-14P-163-1232178-00

PATIENT
  Sex: Female
  Weight: 65.83 kg

DRUGS (8)
  1. HUMIRA [Suspect]
     Indication: COLITIS ULCERATIVE
     Dates: start: 2013, end: 2013
  2. HUMIRA [Suspect]
     Dates: start: 2013, end: 2013
  3. HUMIRA [Suspect]
     Dates: start: 2013, end: 2013
  4. HUMIRA [Suspect]
     Dates: start: 2013, end: 201401
  5. ALLOPURINOL [Concomitant]
     Indication: COLITIS ULCERATIVE
  6. 6-MP [Concomitant]
     Indication: COLITIS ULCERATIVE
  7. COUMADIN [Concomitant]
     Indication: PULMONARY EMBOLISM
  8. LOVENOX [Concomitant]
     Indication: PULMONARY EMBOLISM

REACTIONS (2)
  - Autoimmune hepatitis [Recovered/Resolved]
  - Colitis ulcerative [Not Recovered/Not Resolved]
